FAERS Safety Report 16596591 (Version 1)
Quarter: 2019Q3

REPORT INFORMATION
  Report Type: Spontaneous
  Country: US (occurrence: US)
  Receive Date: 20190719
  Receipt Date: 20190719
  Transmission Date: 20191004
  Serious: Yes (Hospitalization, Other)
  Sender: FDA-Public Use
  Company Number: US-TERSERA THERAPEUTICS LLC-2019TRS001194

PATIENT

DRUGS (1)
  1. PRIALT [Suspect]
     Active Substance: ZICONOTIDE ACETATE
     Indication: BACK PAIN
     Dosage: 5.2 MCG, QD
     Route: 037
     Dates: start: 20190620, end: 20190708

REACTIONS (8)
  - Headache [Not Recovered/Not Resolved]
  - Musculoskeletal stiffness [Unknown]
  - Paraesthesia [Unknown]
  - Anxiety [Recovering/Resolving]
  - Palpitations [Not Recovered/Not Resolved]
  - Meningitis [Unknown]
  - Hypoaesthesia [Unknown]
  - Myocardial infarction [Unknown]

NARRATIVE: CASE EVENT DATE: 2019
